FAERS Safety Report 7303364 (Version 7)
Quarter: 2012Q4

REPORT INFORMATION
  Report Type: 
  Country: JP (occurrence: US)
  Receive Date: 20100303
  Receipt Date: 20121022
  Transmission Date: 20130627
  Serious: Yes (Hospitalization, Other)
  Sender: FDA-Public Use
  Company Number: US-JNJFOC-20100210839

PATIENT
  Sex: Male

DRUGS (2)
  1. LEVAQUIN [Suspect]
     Indication: BACTERIAL INFECTION
     Route: 048
     Dates: start: 20070817
  2. LEVAQUIN [Suspect]
     Indication: ABSCESS
     Route: 042

REACTIONS (6)
  - Tendon injury [Unknown]
  - Periarthritis [Not Recovered/Not Resolved]
  - Tendonitis [Unknown]
  - Rotator cuff syndrome [Unknown]
  - Depression [Unknown]
  - Anxiety [Unknown]
